FAERS Safety Report 18132129 (Version 1)
Quarter: 2020Q3

REPORT INFORMATION
  Report Type: Spontaneous
  Country: US (occurrence: US)
  Receive Date: 20200811
  Receipt Date: 20200811
  Transmission Date: 20201103
  Serious: No
  Sender: FDA-Public Use
  Company Number: US-ELI_LILLY_AND_COMPANY-US202008001761

PATIENT
  Sex: Male

DRUGS (7)
  1. HUMULIN N [Suspect]
     Active Substance: INSULIN HUMAN
     Dosage: 40 U, EACH MORNING
     Route: 065
  2. HUMULIN R [Suspect]
     Active Substance: INSULIN HUMAN
     Dosage: 30 U, EACH EVENING(AT NIGHT)
     Route: 065
  3. HUMULIN R [Suspect]
     Active Substance: INSULIN HUMAN
     Indication: PRODUCT USED FOR UNKNOWN INDICATION
     Dosage: 15 U, EACH MORNING
     Route: 065
  4. HUMULIN N [Suspect]
     Active Substance: INSULIN HUMAN
     Dosage: 22 U, EACH EVENING(AT NIGHT)
     Route: 065
  5. HUMULIN N [Suspect]
     Active Substance: INSULIN HUMAN
     Dosage: 22 U, EACH EVENING(AT NIGHT)
     Route: 065
  6. HUMULIN N [Suspect]
     Active Substance: INSULIN HUMAN
     Indication: PRODUCT USED FOR UNKNOWN INDICATION
     Dosage: 40 U, EACH MORNING
     Route: 065
  7. HUMULIN R [Suspect]
     Active Substance: INSULIN HUMAN
     Dosage: 30 U, DAILY(AT NOONTIME)
     Route: 065

REACTIONS (3)
  - Tremor [Unknown]
  - Memory impairment [Unknown]
  - Blood glucose increased [Unknown]
